FAERS Safety Report 8352148-7 (Version None)
Quarter: 2012Q2

REPORT INFORMATION
  Report Type: 
  Country: None (occurrence: None)
  Receive Date: 20120510
  Receipt Date: 20120510
  Transmission Date: 20120825
  Serious: No
  Sender: FDA-Public Use
  Company Number: None

PATIENT
  Sex: Female
  Weight: 57 kg

DRUGS (1)
  1. VENOFER [Suspect]
     Indication: IRON DEFICIENCY ANAEMIA
     Dosage: 200 MG OVER 30 MINUTES WEEKLY IV
     Route: 042
     Dates: start: 20120326, end: 20120501

REACTIONS (5)
  - DYSGEUSIA [None]
  - DIZZINESS [None]
  - VISION BLURRED [None]
  - ABDOMINAL PAIN [None]
  - NAUSEA [None]
